FAERS Safety Report 8098652-0 (Version None)
Quarter: 2012Q1

REPORT INFORMATION
  Report Type: 
  Country: None (occurrence: None)
  Receive Date: 20120129
  Receipt Date: 20111025
  Transmission Date: 20120608
  Serious: No
  Sender: FDA-Public Use
  Company Number: US-ABBOTT-11P-163-0868915-00

PATIENT
  Sex: Female
  Weight: 70.824 kg

DRUGS (3)
  1. HUMIRA [Suspect]
     Indication: RHEUMATOID ARTHRITIS
     Dates: start: 20110728
  2. MICARDIS [Concomitant]
     Indication: HYPERTENSION
  3. SINGULAIR [Concomitant]
     Indication: BLOOD CHOLESTEROL INCREASED

REACTIONS (3)
  - LIP SWELLING [None]
  - RASH [None]
  - EYE SWELLING [None]
